FAERS Safety Report 11109681 (Version 1)
Quarter: 2015Q2

REPORT INFORMATION
  Report Type: Spontaneous
  Country: US (occurrence: None)
  Receive Date: 20150512
  Receipt Date: 20150512
  Transmission Date: 20150821
  Serious: Yes (Other)
  Sender: FDA-Public Use
  Company Number: None

PATIENT
  Age: 50 Year
  Sex: Female
  Weight: 110.5 kg

DRUGS (1)
  1. ENOXAPRIN SODIUM [Suspect]
     Active Substance: ENOXAPARIN SODIUM
     Dosage: 80MG/ 0.8ML INJ SQ Q12 HRS INJECTION
     Dates: start: 20150105

REACTIONS (2)
  - Injection site reaction [None]
  - Skin reaction [None]

NARRATIVE: CASE EVENT DATE: 20141230
